FAERS Safety Report 4575168-7 (Version None)
Quarter: 2005Q1

REPORT INFORMATION
  Report Type: 
  Country: None (occurrence: None)
  Receive Date: 20050208
  Receipt Date: 20050202
  Transmission Date: 20050727
  Serious: Yes (Other)
  Sender: FDA-Public Use
  Company Number: US-MERCK-0502USA00358

PATIENT
  Sex: Male

DRUGS (1)
  1. VIOXX [Suspect]
     Indication: MONARTHRITIS
     Route: 048

REACTIONS (1)
  - MYOCARDIAL INFARCTION [None]
